FAERS Safety Report 5558298-2 (Version None)
Quarter: 2007Q4

REPORT INFORMATION
  Report Type: 
  Country: None (occurrence: None)
  Receive Date: 20071214
  Receipt Date: 20071205
  Transmission Date: 20080405
  Serious: Yes (Hospitalization)
  Sender: FDA-Public Use
  Company Number: BE-PFIZER INC-2007096772

PATIENT
  Sex: Male
  Weight: 95 kg

DRUGS (3)
  1. ZYVOX [Suspect]
     Indication: ARTHRITIS INFECTIVE
     Route: 042
     Dates: start: 20071012, end: 20071018
  2. NEBIVOLOL [Concomitant]
  3. CARDIOASPIRINE [Concomitant]

REACTIONS (2)
  - AGEUSIA [None]
  - DYSGEUSIA [None]
